FAERS Safety Report 7850560-3 (Version None)
Quarter: 2011Q4

REPORT INFORMATION
  Report Type: 
  Country: None (occurrence: None)
  Receive Date: 20111024
  Receipt Date: 20111013
  Transmission Date: 20120403
  Serious: No
  Sender: FDA-Public Use
  Company Number: ACO_27247_2011

PATIENT
  Age: 60 Year
  Sex: Female

DRUGS (1)
  1. AMPYRA [Suspect]
     Indication: MULTIPLE SCLEROSIS
     Dosage: 10 MG, BID, ORAL
     Route: 048
     Dates: start: 20110801, end: 20111006

REACTIONS (4)
  - HYPOTENSION [None]
  - SPEECH DISORDER [None]
  - ASTHENIA [None]
  - THERAPY CESSATION [None]
